FAERS Safety Report 5471063-X (Version None)
Quarter: 2007Q3

REPORT INFORMATION
  Report Type: 
  Country: None (occurrence: None)
  Receive Date: 20070928
  Receipt Date: 20070525
  Transmission Date: 20080115
  Serious: No
  Sender: FDA-Public Use
  Company Number: A0651606A

PATIENT
  Age: 7 Year
  Sex: Male
  Weight: 29 kg

DRUGS (4)
  1. LAMOTRIGINE [Suspect]
     Indication: EPILEPSY
     Dosage: 5MG AT NIGHT
     Route: 048
     Dates: start: 20070511, end: 20070514
  2. CLONIDINE [Concomitant]
     Dosage: .3MG PER DAY
     Route: 048
  3. AMITRIPTYLINE HCL [Concomitant]
     Dosage: 30MG PER DAY
     Route: 048
     Dates: start: 20050101
  4. KEPPRA [Concomitant]
     Dosage: 250MG TWICE PER DAY
     Route: 048
     Dates: start: 20070101

REACTIONS (2)
  - RASH [None]
  - RASH ERYTHEMATOUS [None]
